FAERS Safety Report 23638396 (Version 2)
Quarter: 2024Q1

REPORT INFORMATION
  Report Type: Report from Study
  Country: CN (occurrence: CN)
  Receive Date: 20240315
  Receipt Date: 20240326
  Transmission Date: 20240410
  Serious: Yes (Life-Threatening)
  Sender: FDA-Public Use
  Company Number: CN-JNJFOC-20240341868

PATIENT
  Age: 60 Year
  Sex: Female
  Weight: 54.2 kg

DRUGS (8)
  1. DARATUMUMAB [Suspect]
     Active Substance: DARATUMUMAB
     Indication: Plasma cell myeloma
     Route: 058
     Dates: start: 20230707, end: 20230810
  2. ELRANATAMAB [Suspect]
     Active Substance: ELRANATAMAB
     Indication: Plasma cell myeloma
     Route: 058
     Dates: start: 20230615, end: 20230615
  3. ELRANATAMAB [Suspect]
     Active Substance: ELRANATAMAB
     Route: 058
     Dates: start: 20230619
  4. ELRANATAMAB [Suspect]
     Active Substance: ELRANATAMAB
     Route: 058
     Dates: start: 20230625, end: 20231122
  5. ELRANATAMAB [Suspect]
     Active Substance: ELRANATAMAB
     Route: 058
     Dates: start: 20231129, end: 20231213
  6. TEICOPLANIN [Concomitant]
     Active Substance: TEICOPLANIN
     Indication: Blood fibrinogen decreased
     Route: 041
     Dates: start: 20231227, end: 20231229
  7. TEICOPLANIN [Concomitant]
     Active Substance: TEICOPLANIN
     Indication: Platelet count decreased
     Route: 041
     Dates: start: 20240101, end: 20240103
  8. TEICOPLANIN [Concomitant]
     Active Substance: TEICOPLANIN
     Route: 041
     Dates: start: 20240223, end: 20240313

REACTIONS (2)
  - Blood fibrinogen decreased [Recovered/Resolved]
  - Platelet count decreased [Recovered/Resolved]

NARRATIVE: CASE EVENT DATE: 20240223
